FAERS Safety Report 15734401 (Version 5)
Quarter: 2019Q1

REPORT INFORMATION
  Report Type: Report from Study
  Country: US (occurrence: US)
  Receive Date: 20181218
  Receipt Date: 20190204
  Transmission Date: 20190417
  Serious: Yes (Hospitalization, Other)
  Sender: FDA-Public Use
  Company Number: US-GILEAD-2018-0376606

PATIENT
  Age: 80 Year
  Sex: Female
  Weight: 73.92 kg

DRUGS (6)
  1. AMBRISENTAN [Suspect]
     Active Substance: AMBRISENTAN
     Indication: PRODUCT USED FOR UNKNOWN INDICATION
     Dosage: 5 MG
     Route: 048
     Dates: start: 20170320
  2. XARELTO [Concomitant]
     Active Substance: RIVAROXABAN
  3. LEVAQUIN [Concomitant]
     Active Substance: LEVOFLOXACIN
  4. FOLIC ACID. [Concomitant]
     Active Substance: FOLIC ACID
  5. VESICARE [Concomitant]
     Active Substance: SOLIFENACIN SUCCINATE
  6. DILTIAZEM. [Concomitant]
     Active Substance: DILTIAZEM

REACTIONS (4)
  - Thrombosis [Unknown]
  - Product use issue [Unknown]
  - Intentional product use issue [Not Recovered/Not Resolved]
  - Scleroderma [Unknown]

NARRATIVE: CASE EVENT DATE: 20181125
